FAERS Safety Report 15143718 (Version 1)
Quarter: 2018Q3

REPORT INFORMATION
  Report Type: Spontaneous
  Country: US (occurrence: US)
  Receive Date: 20180713
  Receipt Date: 20180713
  Transmission Date: 20181010
  Serious: No
  Sender: FDA-Public Use
  Company Number: US-AMGEN-USASP2010001542

PATIENT
  Sex: Female

DRUGS (1)
  1. PROCRIT [Suspect]
     Active Substance: ERYTHROPOIETIN
     Dosage: 40000 UNIT, QWK

REACTIONS (4)
  - Transfusion [Unknown]
  - Confusional state [Unknown]
  - Abnormal behaviour [Unknown]
  - Dementia [Unknown]
